FAERS Safety Report 6408720-4 (Version None)
Quarter: 2009Q4

REPORT INFORMATION
  Report Type: 
  Country: None (occurrence: None)
  Receive Date: 20091019
  Receipt Date: 20090902
  Transmission Date: 20100525
  Serious: Yes (Hospitalization)
  Sender: FDA-Public Use
  Company Number: 2009AL006549

PATIENT
  Age: 78 Year
  Sex: Female

DRUGS (9)
  1. RAMIPRIL CAPSULES, 5MG (AELLC) [Suspect]
     Indication: HYPERTENSION
     Dosage: 5 MG;BID;PO
     Route: 048
     Dates: end: 20090805
  2. DOXACOR [Concomitant]
  3. L-THYROX [Concomitant]
  4. METHOHEXAL [Concomitant]
  5. MINIASAL [Concomitant]
  6. MOXONIDINE [Concomitant]
  7. PROVAS [Concomitant]
  8. SULPIRIDE [Concomitant]
  9. RASILEZ [Concomitant]

REACTIONS (5)
  - BLOOD PRESSURE SYSTOLIC INCREASED [None]
  - DIZZINESS [None]
  - HEADACHE [None]
  - HYPONATRAEMIA [None]
  - MALAISE [None]
